APPROVED DRUG PRODUCT: DESOXIMETASONE
Active Ingredient: DESOXIMETASONE
Strength: 0.25%
Dosage Form/Route: OINTMENT;TOPICAL
Application: A201005 | Product #001 | TE Code: AB
Applicant: EPIC PHARMA LLC
Approved: Apr 24, 2014 | RLD: No | RS: No | Type: RX